FAERS Safety Report 11807627 (Version 1)
Quarter: 2015Q4

REPORT INFORMATION
  Report Type: Spontaneous
  Country: US (occurrence: US)
  Receive Date: 20151207
  Receipt Date: 20151207
  Transmission Date: 20160305
  Serious: Yes (Other)
  Sender: FDA-Public Use
  Company Number: US-SMITH AND NEPHEW, INC-2015SMT00581

PATIENT
  Sex: Female

DRUGS (1)
  1. REGRANEX [Suspect]
     Active Substance: BECAPLERMIN
     Indication: SKIN ULCER
     Dosage: UNK, EVERY 48 HOURS
     Route: 061

REACTIONS (8)
  - Skin ulcer [Unknown]
  - Inflammation of wound [Unknown]
  - Wound complication [Unknown]
  - Incorrect drug administration duration [Unknown]
  - Off label use [Not Recovered/Not Resolved]
  - Cardiovascular disorder [Unknown]
  - Stent placement [Unknown]
  - Skin warm [Unknown]
